FAERS Safety Report 7647406-5 (Version None)
Quarter: 2011Q3

REPORT INFORMATION
  Report Type: 
  Country: None (occurrence: None)
  Receive Date: 20110726
  Receipt Date: 20110721
  Transmission Date: 20111222
  Serious: Yes (Death, Life-Threatening, Hospitalization, Other)
  Sender: FDA-Public Use
  Company Number: 2008-178904-NL

PATIENT
  Age: 59 Year
  Sex: Male

DRUGS (8)
  1. ISOSORBIDE MONONITRATE [Concomitant]
  2. PARACET [Concomitant]
  3. FENTANYL [Concomitant]
  4. REMERON [Suspect]
     Indication: DEPRESSION
     Dosage: 60 MG, QD, PO
     Route: 048
  5. AMITRIPTYLINE HYDROCHLORIDE [Suspect]
     Indication: DEPRESSION
     Dosage: 125 MG, QD, PO
     Route: 048
  6. ALPRAZOLAM [Concomitant]
  7. ATENOLOL [Concomitant]
  8. BENDROFLUMETHIAZIDE [Concomitant]

REACTIONS (12)
  - HEPATIC STEATOSIS [None]
  - MULTI-ORGAN FAILURE [None]
  - HEPATIC FAILURE [None]
  - METABOLIC ACIDOSIS [None]
  - CEREBELLAR ATROPHY [None]
  - DISSEMINATED INTRAVASCULAR COAGULATION [None]
  - SEROTONIN SYNDROME [None]
  - MULTIPLE DRUG OVERDOSE [None]
  - INTESTINAL DILATATION [None]
  - TOXICITY TO VARIOUS AGENTS [None]
  - RHABDOMYOLYSIS [None]
  - DRUG INTERACTION [None]
